FAERS Safety Report 17819909 (Version 3)
Quarter: 2020Q4

REPORT INFORMATION
  Report Type: Spontaneous
  Country: PL (occurrence: PL)
  Receive Date: 20200524
  Receipt Date: 20201001
  Transmission Date: 20210113
  Serious: Yes (Death, Life-Threatening, Hospitalization, Other)
  Sender: FDA-Public Use
  Company Number: PL-BAXTER-2020BAX010744

PATIENT
  Age: 10 Year
  Sex: Male

DRUGS (4)
  1. VINCRISTINE [Suspect]
     Active Substance: VINCRISTINE
     Indication: EMBRYONAL RHABDOMYOSARCOMA
     Dosage: 19.5 MILLIGRAM/SQ. METER
     Route: 065
     Dates: start: 2008
  2. DOXIL [Suspect]
     Active Substance: DOXORUBICIN HYDROCHLORIDE
     Indication: EMBRYONAL RHABDOMYOSARCOMA
     Dosage: 320 MILLIGRAM/SQ. METER
     Route: 065
     Dates: start: 2008
  3. IFOSFAMIDE. [Suspect]
     Active Substance: IFOSFAMIDE
     Indication: EMBRYONAL RHABDOMYOSARCOMA
     Dosage: 54000 MILLIGRAM/SQ. METER
     Route: 065
     Dates: start: 2008
  4. ACTINOMYCIN D [Suspect]
     Active Substance: DACTINOMYCIN
     Indication: EMBRYONAL RHABDOMYOSARCOMA
     Dosage: 7.5 MILLIEQUIVALENT PER SQUARE METRE
     Route: 065
     Dates: start: 2008

REACTIONS (8)
  - Acute myeloid leukaemia [Fatal]
  - Neutropenia [Unknown]
  - Chromosome analysis abnormal [Fatal]
  - Chromosomal mutation [Fatal]
  - Toxicity to various agents [Fatal]
  - Myelodysplastic syndrome [Fatal]
  - Transformation to acute myeloid leukaemia [Fatal]
  - Streptococcal sepsis [Unknown]

NARRATIVE: CASE EVENT DATE: 201101
